FAERS Safety Report 26100042 (Version 1)
Quarter: 2025Q4

REPORT INFORMATION
  Report Type: Spontaneous
  Country: US (occurrence: US)
  Receive Date: 20251128
  Receipt Date: 20251128
  Transmission Date: 20260118
  Serious: Yes (Other)
  Sender: AMGEN
  Company Number: US-AMGEN-USASP2025234252

PATIENT
  Age: 48 Year
  Sex: Female

DRUGS (5)
  1. PREDNISONE [Suspect]
     Active Substance: PREDNISONE
     Indication: Hypophysitis
     Dosage: 40 MILLIGRAM, QD
     Route: 065
  2. PREDNISONE [Suspect]
     Active Substance: PREDNISONE
     Dosage: UNK, QD (TAPERED OVER ONE MONTH)
     Route: 065
  3. PREDNISONE [Suspect]
     Active Substance: PREDNISONE
     Dosage: 5 MILLIGRAM, QD (FOR FURTHER TWO MONTHS)
     Route: 065
  4. IPILIMUMAB [Concomitant]
     Active Substance: IPILIMUMAB
     Indication: Malignant melanoma stage IV
  5. NIVOLUMAB [Concomitant]
     Active Substance: NIVOLUMAB
     Indication: Malignant melanoma stage IV

REACTIONS (5)
  - Adrenal insufficiency [Not Recovered/Not Resolved]
  - Central hypothyroidism [Not Recovered/Not Resolved]
  - Drug effective for unapproved indication [Unknown]
  - Hypophysitis [Recovered/Resolved]
  - Off label use [Unknown]
